FAERS Safety Report 6892970-7 (Version None)
Quarter: 2010Q3

REPORT INFORMATION
  Report Type: 
  Country: None (occurrence: None)
  Receive Date: 20100731
  Receipt Date: 20081212
  Transmission Date: 20110219
  Serious: No
  Sender: FDA-Public Use
  Company Number: US-PFIZER INC-2008080489

PATIENT
  Sex: Female
  Weight: 67.7 kg

DRUGS (1)
  1. NORVASC [Suspect]
     Indication: HYPERTENSION

REACTIONS (4)
  - DRUG INEFFECTIVE [None]
  - DYSPNOEA [None]
  - OROPHARYNGEAL PAIN [None]
  - PHARYNGEAL OEDEMA [None]
